FAERS Safety Report 8160290-9 (Version None)
Quarter: 2012Q1

REPORT INFORMATION
  Report Type: 
  Country: None (occurrence: None)
  Receive Date: 20120223
  Receipt Date: 20120223
  Transmission Date: 20120608
  Serious: No
  Sender: FDA-Public Use
  Company Number: None

PATIENT
  Age: 45 Year
  Sex: Female
  Weight: 81.646 kg

DRUGS (2)
  1. ZYCAM NASAL SWABS [Suspect]
     Indication: PROPHYLAXIS
  2. ZYCAM NASAL SWABS [Suspect]
     Indication: NASOPHARYNGITIS

REACTIONS (1)
  - ANOSMIA [None]
